FAERS Safety Report 17073129 (Version 1)
Quarter: 2019Q4

REPORT INFORMATION
  Report Type: Report from Study
  Country: None (occurrence: AT)
  Receive Date: 20191125
  Receipt Date: 20191125
  Transmission Date: 20200122
  Serious: Yes (Hospitalization)
  Sender: FDA-Public Use
  Company Number: AT-ABBVIE-19K-009-3168322-00

PATIENT
  Sex: Male

DRUGS (1)
  1. DUODOPA [Suspect]
     Active Substance: CARBIDOPA\LEVODOPA
     Indication: PARKINSON^S DISEASE
     Dosage: 24H??MD: 6ML, CR DAYTIME: 6ML, CR NIGHTTIME: 4ML, ED: 2.5ML
     Route: 050
     Dates: start: 20080312

REACTIONS (1)
  - Pneumonia aspiration [Not Recovered/Not Resolved]
